FAERS Safety Report 6859192-7 (Version None)
Quarter: 2010Q3

REPORT INFORMATION
  Report Type: 
  Country: None (occurrence: None)
  Receive Date: 20100719
  Receipt Date: 20080222
  Transmission Date: 20110219
  Serious: No
  Sender: FDA-Public Use
  Company Number: US-PFIZER INC-2008017796

PATIENT
  Sex: Male
  Weight: 98.6 kg

DRUGS (4)
  1. CHANTIX [Suspect]
     Indication: SMOKING CESSATION THERAPY
     Dates: start: 20080204
  2. SPIRIVA [Concomitant]
     Indication: LUNG DISORDER
  3. ACETYLSALICYLIC ACID [Concomitant]
  4. MOMETASONE FUROATE [Concomitant]

REACTIONS (1)
  - HEADACHE [None]
